FAERS Safety Report 15014260 (Version 1)
Quarter: 2018Q2

REPORT INFORMATION
  Report Type: Report from Study
  Country: ES (occurrence: ES)
  Receive Date: 20180615
  Receipt Date: 20180615
  Transmission Date: 20180711
  Serious: Yes (Other)
  Sender: FDA-Public Use
  Company Number: ES-TEVA-2018-ES-907543

PATIENT
  Age: 10 Year
  Sex: Female

DRUGS (2)
  1. SALBUTAMOL (2297A) [Concomitant]
     Dosage: 2-2-2
     Route: 055
     Dates: start: 20170805
  2. AZITHROMYCIN ANHYDROUS. [Suspect]
     Active Substance: AZITHROMYCIN ANHYDROUS
     Dosage: 250 MILLIGRAM DAILY; 250 MG DIA
     Route: 048
     Dates: start: 20170805, end: 20170810

REACTIONS (1)
  - Agranulocytosis [Recovered/Resolved]

NARRATIVE: CASE EVENT DATE: 20170806
